FAERS Safety Report 22021097 (Version 1)
Quarter: 2023Q1

REPORT INFORMATION
  Report Type: Other
  Country: CH (occurrence: None)
  Receive Date: 20230222
  Receipt Date: 20230222
  Transmission Date: 20230417
  Serious: Yes (Other)
  Sender: FDA-Public Use
  Company Number: CH-Bion-011204

PATIENT
  Age: 42 Year
  Sex: Female

DRUGS (3)
  1. IBUPROFEN [Suspect]
     Active Substance: IBUPROFEN
     Indication: Hypergammaglobulinaemia benign monoclonal
  2. ADALIMUMAB [Concomitant]
     Active Substance: ADALIMUMAB
     Indication: Hypergammaglobulinaemia benign monoclonal
  3. METHOTREXATE [Concomitant]
     Active Substance: METHOTREXATE
     Indication: Hypergammaglobulinaemia benign monoclonal

REACTIONS (2)
  - Renal failure [Recovered/Resolved]
  - Drug ineffective [Not Recovered/Not Resolved]
